FAERS Safety Report 19719072 (Version 1)
Quarter: 2021Q3

REPORT INFORMATION
  Report Type: Spontaneous
  Country: US (occurrence: US)
  Receive Date: 20210819
  Receipt Date: 20210819
  Transmission Date: 20211014
  Serious: No
  Sender: FDA-Public Use
  Company Number: None

PATIENT
  Age: 41 Year
  Sex: Female
  Weight: 88.91 kg

DRUGS (8)
  1. PARAGARD T 380A [Suspect]
     Active Substance: COPPER
  2. MAGNESIUM [Concomitant]
     Active Substance: MAGNESIUM
  3. ALEVE [Concomitant]
     Active Substance: NAPROXEN SODIUM
  4. TOPIRAMATE. [Concomitant]
     Active Substance: TOPIRAMATE
  5. PROMETHAZINE [Concomitant]
     Active Substance: PROMETHAZINE HYDROCHLORIDE
  6. FAMOTIDINE. [Concomitant]
     Active Substance: FAMOTIDINE
  7. SUMATRIPTAN. [Concomitant]
     Active Substance: SUMATRIPTAN
  8. ELDERBERRY [Concomitant]
     Active Substance: HERBALS

REACTIONS (4)
  - Back pain [None]
  - Vaginal haemorrhage [None]
  - Complication associated with device [None]
  - Abdominal pain [None]

NARRATIVE: CASE EVENT DATE: 20210628
